FAERS Safety Report 22103172 (Version 1)
Quarter: 2023Q1

REPORT INFORMATION
  Report Type: Spontaneous
  Country: US (occurrence: US)
  Receive Date: 20230316
  Receipt Date: 20230316
  Transmission Date: 20230418
  Serious: Yes (Other)
  Sender: FDA-Public Use
  Company Number: US-MYLANLABS-2023M1026239

PATIENT
  Age: 62 Year
  Sex: Male

DRUGS (1)
  1. OCTREOTIDE [Suspect]
     Active Substance: OCTREOTIDE
     Indication: Melaena
     Dosage: UNK, INFUSION
     Route: 042

REACTIONS (2)
  - Sinus arrest [Recovered/Resolved]
  - Off label use [Unknown]
